FAERS Safety Report 7517131-X (Version None)
Quarter: 2011Q2

REPORT INFORMATION
  Report Type: 
  Country: None (occurrence: None)
  Receive Date: 20110526
  Receipt Date: 20110526
  Transmission Date: 20111010
  Serious: No
  Sender: FDA-Public Use
  Company Number: None

PATIENT
  Age: 64 Year
  Sex: Male

DRUGS (1)
  1. LATANOPROST [Suspect]
     Indication: GLAUCOMA
     Dosage: 1 DROP EVERY DAY IN BOTH EYES
     Route: 031
     Dates: start: 20110526

REACTIONS (2)
  - INSTILLATION SITE PAIN [None]
  - PRODUCT SUBSTITUTION ISSUE [None]
